FAERS Safety Report 7559250-8 (Version None)
Quarter: 2011Q2

REPORT INFORMATION
  Report Type: 
  Country: None (occurrence: None)
  Receive Date: 20110613
  Receipt Date: 20110602
  Transmission Date: 20111010
  Serious: Yes (Other)
  Sender: FDA-Public Use
  Company Number: US-001781

PATIENT
  Sex: Female

DRUGS (2)
  1. KUVAN [Suspect]
     Indication: PRODUCT USED FOR UNKNOWN INDICATION
     Dosage: 1300 MG QD ORAL
     Route: 048
     Dates: start: 20090101, end: 20110401
  2. CHEMOTHERAPEUTICS NOS [Concomitant]

REACTIONS (1)
  - BREAST CANCER FEMALE [None]
